FAERS Safety Report 4488222-5 (Version None)
Quarter: 2004Q4

REPORT INFORMATION
  Report Type: 
  Country: None (occurrence: None)
  Receive Date: 20041026
  Receipt Date: 20041013
  Transmission Date: 20050328
  Serious: Yes (Hospitalization, Other)
  Sender: FDA-Public Use
  Company Number: USA030843823

PATIENT
  Age: 65 Year
  Sex: Female
  Weight: 114 kg

DRUGS (4)
  1. HUMULIN N [Suspect]
     Indication: DIABETES MELLITUS
     Dates: start: 19820101, end: 20021101
  2. HUMULIN R [Suspect]
     Indication: DIABETES MELLITUS
     Dates: start: 19820101, end: 20021101
  3. HUMALOG [Suspect]
     Indication: DIABETES MELLITUS
     Dosage: 15 U/3 DAY
     Dates: start: 20021101
  4. LANTUS [Suspect]

REACTIONS (11)
  - BLOOD GLUCOSE INCREASED [None]
  - CLAVICLE FRACTURE [None]
  - COLON CANCER [None]
  - FALL [None]
  - JOINT SPRAIN [None]
  - KNEE ARTHROPLASTY [None]
  - PHARMACEUTICAL PRODUCT COMPLAINT [None]
  - POST PROCEDURAL COMPLICATION [None]
  - SCIATICA [None]
  - THERAPY NON-RESPONDER [None]
  - UPPER LIMB FRACTURE [None]
